FAERS Safety Report 8240954-9 (Version None)
Quarter: 2012Q1

REPORT INFORMATION
  Report Type: 
  Country: None (occurrence: None)
  Receive Date: 20120328
  Receipt Date: 20120320
  Transmission Date: 20120608
  Serious: Yes (Other)
  Sender: FDA-Public Use
  Company Number: BR-ASTRAZENECA-2012SE19164

PATIENT
  Age: 59 Year
  Sex: Female
  Weight: 71 kg

DRUGS (5)
  1. NEXIUM [Suspect]
     Indication: GASTRITIS
     Dosage: PRN
     Route: 048
  2. DILURIC [Concomitant]
     Route: 048
  3. CRESTOR [Suspect]
     Indication: BLOOD CHOLESTEROL INCREASED
     Route: 048
     Dates: start: 20060101
  4. BRILINTA [Suspect]
     Indication: ANTICOAGULANT THERAPY
     Route: 048
     Dates: start: 20120311
  5. MICARDIS [Concomitant]
     Route: 048

REACTIONS (4)
  - OFF LABEL USE [None]
  - GASTRITIS [None]
  - MYOCARDIAL ISCHAEMIA [None]
  - MYALGIA [None]
